FAERS Safety Report 4334108-6 (Version None)
Quarter: 2004Q2

REPORT INFORMATION
  Report Type: 
  Country: None (occurrence: None)
  Receive Date: 20040405
  Receipt Date: 20040325
  Transmission Date: 20050107
  Serious: Yes (Other)
  Sender: FDA-Public Use
  Company Number: 2004-03-1865

PATIENT
  Age: 54 Year
  Sex: Male

DRUGS (1)
  1. INTRON A [Suspect]

REACTIONS (1)
  - RETINAL DETACHMENT [None]
